FAERS Safety Report 13014228 (Version 1)
Quarter: 2016Q4

REPORT INFORMATION
  Report Type: Spontaneous
  Country: NL (occurrence: US)
  Receive Date: 20161209
  Receipt Date: 20161209
  Transmission Date: 20170207
  Serious: No
  Sender: FDA-Public Use
  Company Number: NL-CHIESI USA INC.-US-2016CHI000729

PATIENT
  Sex: Male

DRUGS (1)
  1. BETHKIS [Suspect]
     Active Substance: TOBRAMYCIN
     Indication: PSEUDOMONAS INFECTION
     Dosage: UNK, 2 DOSAGE FORM, DAILY
     Route: 055
     Dates: start: 20160202

REACTIONS (1)
  - Cardiac disorder [Recovering/Resolving]
